FAERS Safety Report 5069114-X (Version None)
Quarter: 2006Q3

REPORT INFORMATION
  Report Type: 
  Country: None (occurrence: None)
  Receive Date: 20060731
  Receipt Date: 20060718
  Transmission Date: 20061208
  Serious: Yes (Hospitalization)
  Sender: FDA-Public Use
  Company Number: 200613503BWH

PATIENT
  Age: 65 Year
  Sex: Male

DRUGS (11)
  1. NEXAVAR [Suspect]
     Indication: LEUKAEMIA
     Dosage: 400 + 200 MG, BID, ORAL
     Route: 048
     Dates: start: 20050901, end: 20060701
  2. NEXAVAR [Suspect]
     Indication: RENAL CELL CARCINOMA STAGE UNSPECIFIED
     Dosage: 400 + 200 MG, BID, ORAL
     Route: 048
     Dates: start: 20050901, end: 20060701
  3. NEXAVAR [Suspect]
     Indication: LEUKAEMIA
     Dosage: 400 + 200 MG, BID, ORAL
     Route: 048
     Dates: start: 20050901
  4. NEXAVAR [Suspect]
     Indication: RENAL CELL CARCINOMA STAGE UNSPECIFIED
     Dosage: 400 + 200 MG, BID, ORAL
     Route: 048
     Dates: start: 20050901
  5. MORPHINE [Concomitant]
  6. LEXAPRO [Concomitant]
  7. PREDNISONE [Concomitant]
  8. LIPITOR [Concomitant]
  9. GLIPIZIDE [Concomitant]
  10. LISINOPRIL [Concomitant]
  11. GABAPENTIN [Concomitant]

REACTIONS (6)
  - BLOOD POTASSIUM DECREASED [None]
  - CONSTIPATION [None]
  - DIARRHOEA [None]
  - DYSPHASIA [None]
  - RASH [None]
  - WHITE BLOOD CELL COUNT DECREASED [None]
